FAERS Safety Report 7358873-9 (Version None)
Quarter: 2011Q1

REPORT INFORMATION
  Report Type: 
  Country: None (occurrence: None)
  Receive Date: 20110317
  Receipt Date: 20110309
  Transmission Date: 20110831
  Serious: Yes (Hospitalization)
  Sender: FDA-Public Use
  Company Number: Z0006638B

PATIENT
  Sex: Male
  Weight: 61.5 kg

DRUGS (2)
  1. OFATUMUMAB [Suspect]
     Indication: CHRONIC LYMPHOCYTIC LEUKAEMIA
     Route: 042
     Dates: start: 20101117
  2. CHLORAMBUCIL [Suspect]
     Indication: CHRONIC LYMPHOCYTIC LEUKAEMIA
     Route: 048
     Dates: start: 20101117

REACTIONS (1)
  - FEBRILE NEUTROPENIA [None]
